FAERS Safety Report 7505364-8 (Version None)
Quarter: 2011Q2

REPORT INFORMATION
  Report Type: 
  Country: None (occurrence: None)
  Receive Date: 20110526
  Receipt Date: 20110513
  Transmission Date: 20111010
  Serious: Yes (Other)
  Sender: FDA-Public Use
  Company Number: ES-JNJFOC-20110508124

PATIENT
  Sex: Female
  Weight: 54 kg

DRUGS (1)
  1. ORTHO EVRA [Suspect]
     Indication: CONTRACEPTION
     Route: 062
     Dates: end: 20110501

REACTIONS (4)
  - HAEMORRHAGE [None]
  - BREAST SWELLING [None]
  - VERTIGO [None]
  - DIZZINESS [None]
